APPROVED DRUG PRODUCT: CALCIPOTRIENE
Active Ingredient: CALCIPOTRIENE
Strength: 0.005%
Dosage Form/Route: SOLUTION;TOPICAL
Application: A078305 | Product #001 | TE Code: AT
Applicant: FOUGERA PHARMACEUTICALS INC
Approved: May 6, 2008 | RLD: No | RS: No | Type: RX